FAERS Safety Report 6418289-6 (Version None)
Quarter: 2009Q4

REPORT INFORMATION
  Report Type: 
  Country: None (occurrence: None)
  Receive Date: 20091028
  Receipt Date: 20091019
  Transmission Date: 20100525
  Serious: Yes (Other)
  Sender: FDA-Public Use
  Company Number: GR-ABBOTT-09P-066-0603512-00

PATIENT
  Sex: Male

DRUGS (2)
  1. DEPAKINE CHRONOSPHERE [Suspect]
     Indication: CONVULSION
     Route: 048
  2. VALPROATE SODIUM [Concomitant]
     Indication: CONVULSION
     Route: 048

REACTIONS (3)
  - CONVULSION [None]
  - DRUG LEVEL DECREASED [None]
  - PRODUCT SUBSTITUTION ISSUE [None]
